FAERS Safety Report 8499948-0 (Version None)
Quarter: 2012Q3

REPORT INFORMATION
  Report Type: 
  Country: None (occurrence: None)
  Receive Date: 20120710
  Receipt Date: 20120702
  Transmission Date: 20120928
  Serious: Yes (Hospitalization)
  Sender: FDA-Public Use
  Company Number: US-BAYER-2012-066224

PATIENT
  Age: 33 Year
  Sex: Female

DRUGS (14)
  1. DROSPIRENONE AND ETHINYL ESTRADIOL [Suspect]
     Dosage: 1 DF, QD
     Route: 048
  2. VICODIN [Concomitant]
  3. PREDNISONE TAB [Concomitant]
     Dosage: 20 MG, UNK
     Route: 048
     Dates: start: 20090703
  4. PRAMOSONE [Concomitant]
     Dosage: UNK
     Route: 061
     Dates: start: 20090710
  5. CEFDINIR [Concomitant]
     Dosage: 300 MG, UNK
     Route: 048
     Dates: start: 20090823
  6. YAZ [Suspect]
     Dosage: 1 DF, QD
     Route: 048
  7. HYDROXYZINE HCL [Concomitant]
     Dosage: 25 MG, UNK
     Route: 048
     Dates: start: 20090710
  8. YASMIN [Suspect]
     Dosage: 1 DF, QD
     Route: 048
  9. DOXEPIN [Concomitant]
     Dosage: 10 MG, UNK
     Route: 048
     Dates: start: 20090805
  10. CLOBEX [Concomitant]
     Dosage: UNK
     Route: 061
     Dates: start: 20090703
  11. METHYLPREDNISOLONE [Concomitant]
     Dosage: UNK
     Route: 048
     Dates: start: 20090717
  12. CLINDAMYCIN PHOSPHATE [Concomitant]
     Dosage: UNK
     Route: 061
     Dates: start: 20090805
  13. BENZACLIN TOPICAL [Concomitant]
     Dosage: 50G PUMP
     Route: 061
     Dates: start: 20090805
  14. AMBIEN [Concomitant]
     Dosage: 10 MG, UNK
     Route: 048

REACTIONS (1)
  - DEEP VEIN THROMBOSIS [None]
